FAERS Safety Report 16440781 (Version 1)
Quarter: 2019Q2

REPORT INFORMATION
  Report Type: Spontaneous
  Country: US (occurrence: US)
  Receive Date: 20190617
  Receipt Date: 20190617
  Transmission Date: 20190711
  Serious: Yes (Other)
  Sender: FDA-Public Use
  Company Number: US-GLAXOSMITHKLINE-US2019106146

PATIENT
  Sex: Female

DRUGS (2)
  1. COREG [Suspect]
     Active Substance: CARVEDILOL
     Indication: PRODUCT USED FOR UNKNOWN INDICATION
     Dosage: 3.125 MG, BID
     Route: 065
  2. COREG [Suspect]
     Active Substance: CARVEDILOL
     Dosage: 3.125 MG, QD
     Route: 065
     Dates: start: 201905

REACTIONS (3)
  - Breast cancer female [Recovered/Resolved]
  - Product availability issue [Unknown]
  - Intentional underdose [Unknown]

NARRATIVE: CASE EVENT DATE: 2005
